FAERS Safety Report 4366505-7 (Version None)
Quarter: 2004Q2

REPORT INFORMATION
  Report Type: 
  Country: None (occurrence: None)
  Receive Date: 20040527
  Receipt Date: 20040429
  Transmission Date: 20050107
  Serious: No
  Sender: FDA-Public Use
  Company Number: US-BRISTOL-MYERS SQUIBB COMPANY-12574521

PATIENT
  Age: 48 Year
  Sex: Male
  Weight: 91 kg

DRUGS (3)
  1. ERBITUX [Suspect]
     Indication: COLON CANCER METASTATIC
     Route: 042
     Dates: start: 20040422, end: 20040422
  2. BENADRYL [Concomitant]
     Indication: PREMEDICATION
     Route: 042
     Dates: start: 20040422, end: 20040422
  3. CPT-11 [Concomitant]
     Route: 042
     Dates: start: 20040422, end: 20040422

REACTIONS (2)
  - RASH PAPULAR [None]
  - RASH PRURITIC [None]
